FAERS Safety Report 7568324-7 (Version None)
Quarter: 2011Q2

REPORT INFORMATION
  Report Type: 
  Country: None (occurrence: None)
  Receive Date: 20110623
  Receipt Date: 20110603
  Transmission Date: 20111010
  Serious: Yes (Hospitalization)
  Sender: FDA-Public Use
  Company Number: A0835057A

PATIENT
  Sex: Male

DRUGS (1)
  1. AVANDIA [Suspect]
     Dosage: 8MG TWICE PER DAY
     Route: 065
     Dates: start: 19990101, end: 20070101

REACTIONS (3)
  - MYOCARDIAL INFARCTION [None]
  - RENAL IMPAIRMENT [None]
  - CARDIOMYOPATHY [None]
